FAERS Safety Report 19185498 (Version 2)
Quarter: 2021Q2

REPORT INFORMATION
  Report Type: Spontaneous
  Country: US (occurrence: US)
  Receive Date: 20210427
  Receipt Date: 20210504
  Transmission Date: 20210717
  Serious: No
  Sender: FDA-Public Use
  Company Number: US-PFIZER INC-2021430896

PATIENT
  Age: 65 Year
  Sex: Male

DRUGS (4)
  1. INLYTA [Suspect]
     Active Substance: AXITINIB
     Indication: BRAIN NEOPLASM MALIGNANT
     Dosage: UNK
     Route: 048
  2. TOZINAMERAN. [Suspect]
     Active Substance: TOZINAMERAN
     Indication: COVID-19 IMMUNISATION
     Dosage: SINGLE DOSE
  3. INLYTA [Suspect]
     Active Substance: AXITINIB
     Indication: RENAL CANCER
  4. KEYTRUDA [Concomitant]
     Active Substance: PEMBROLIZUMAB
     Dosage: UNK

REACTIONS (5)
  - Pyrexia [Unknown]
  - Fatigue [Unknown]
  - Limb discomfort [Unknown]
  - Pain [Unknown]
  - Asthenia [Unknown]
